FAERS Safety Report 9236128 (Version 7)
Quarter: 2014Q3

REPORT INFORMATION
  Report Type: Spontaneous
  Country: US (occurrence: US)
  Receive Date: 20130417
  Receipt Date: 20140917
  Transmission Date: 20150326
  Serious: No
  Sender: FDA-Public Use
  Company Number: US-009507513-1304USA006803

PATIENT
  Sex: Male
  Weight: 87.98 kg

DRUGS (4)
  1. CLARITIN-D 12 HOUR [Concomitant]
     Active Substance: LORATADINE\PSEUDOEPHEDRINE SULFATE
     Dosage: UNK
     Route: 048
     Dates: start: 1997
  2. PROPECIA [Suspect]
     Active Substance: FINASTERIDE
     Indication: ANDROGENETIC ALOPECIA
     Dosage: 1 MG, QD
     Route: 048
     Dates: start: 199912, end: 200512
  3. PROPECIA [Suspect]
     Active Substance: FINASTERIDE
     Dosage: UNK
     Route: 048
     Dates: start: 200708
  4. PROPECIA [Suspect]
     Active Substance: FINASTERIDE
     Dosage: 1 MG, QD
     Route: 048
     Dates: start: 200607, end: 200608

REACTIONS (57)
  - Back injury [Unknown]
  - Cyst [Unknown]
  - Sleep apnoea syndrome [Unknown]
  - Testicular cyst [Unknown]
  - Onychomycosis [Unknown]
  - Dysplastic naevus [Unknown]
  - Seasonal allergy [Unknown]
  - Actinic keratosis [Unknown]
  - Hypertonic bladder [Unknown]
  - Inguinal hernia [Unknown]
  - Arthralgia [Unknown]
  - Retinal haemorrhage [Unknown]
  - Benign prostatic hyperplasia [Unknown]
  - Heart rate increased [Not Recovered/Not Resolved]
  - Nephrolithiasis [Unknown]
  - Penile size reduced [Unknown]
  - Testicular disorder [Unknown]
  - Dyspnoea [Unknown]
  - Gastrooesophageal reflux disease [Unknown]
  - Libido decreased [Not Recovered/Not Resolved]
  - Benign prostatic hyperplasia [Unknown]
  - Penile vascular disorder [Unknown]
  - Dysplastic naevus [Unknown]
  - Renal stone removal [Unknown]
  - Restless legs syndrome [Unknown]
  - Neck pain [Not Recovered/Not Resolved]
  - Sexual dysfunction [Unknown]
  - Palpitations [Not Recovered/Not Resolved]
  - Stress at work [Unknown]
  - Anxiety [Unknown]
  - Neck injury [Unknown]
  - Road traffic accident [Unknown]
  - Dermatitis acneiform [Unknown]
  - Extrasystoles [Unknown]
  - Ejaculation failure [Not Recovered/Not Resolved]
  - Hormone level abnormal [Unknown]
  - Road traffic accident [Unknown]
  - Weight increased [Unknown]
  - Skin neoplasm excision [Unknown]
  - Biopsy colon [Unknown]
  - Erectile dysfunction [Not Recovered/Not Resolved]
  - Genital disorder male [Unknown]
  - Flank pain [Unknown]
  - Colitis ulcerative [Unknown]
  - Skin neoplasm excision [Unknown]
  - Seborrhoea [Unknown]
  - Essential hypertension [Unknown]
  - Depression [Unknown]
  - Urinary tract infection [Unknown]
  - Drug ineffective [Unknown]
  - Irritable bowel syndrome [Unknown]
  - Back pain [Not Recovered/Not Resolved]
  - Dysplastic naevus [Unknown]
  - Melanocytic naevus [Unknown]
  - Hair growth abnormal [Unknown]
  - Skin neoplasm excision [Unknown]
  - Chest pain [Unknown]

NARRATIVE: CASE EVENT DATE: 2001
